FAERS Safety Report 4590274-9 (Version None)
Quarter: 2005Q1

REPORT INFORMATION
  Report Type: 
  Country: None (occurrence: None)
  Receive Date: 20050224
  Receipt Date: 20050127
  Transmission Date: 20050727
  Serious: Yes (Hospitalization, Other)
  Sender: FDA-Public Use
  Company Number: PHBS2005JP01638

PATIENT
  Age: 66 Year
  Sex: Female
  Weight: 53 kg

DRUGS (6)
  1. VOLTAREN [Suspect]
     Indication: BACK PAIN
     Dosage: 25 MG/DAY
     Route: 054
     Dates: start: 20021101, end: 20021201
  2. ZALTOPROFEN [Suspect]
     Indication: BACK PAIN
     Route: 048
  3. HALCION [Concomitant]
     Indication: INSOMNIA
     Dosage: 1 DF/DAY
     Route: 048
     Dates: start: 20021023
  4. SOLDOL E [Concomitant]
     Indication: CONSTIPATION
     Dosage: 3 DF/DAY
     Route: 048
     Dates: start: 20021023
  5. PANTOSIN [Concomitant]
     Indication: INSOMNIA
     Dosage: 1.5 DF/DAY
     Route: 048
     Dates: start: 20021115
  6. MAGNESIUM OXIDE [Concomitant]
     Indication: CONSTIPATION
     Dosage: 1.5 DF/DAY
     Route: 048
     Dates: start: 20021115

REACTIONS (3)
  - GASTROINTESTINAL EROSION [None]
  - HAEMATOCHEZIA [None]
  - PROCTITIS HAEMORRHAGIC [None]
